FAERS Safety Report 9840902 (Version 1)
Quarter: 2014Q1

REPORT INFORMATION
  Report Type: Spontaneous
  Country: SE (occurrence: SE)
  Receive Date: 20140124
  Receipt Date: 20140124
  Transmission Date: 20141002
  Serious: Yes (Other)
  Sender: FDA-Public Use
  Company Number: SE-BAYER-2014-006486

PATIENT
  Age: 45 Year
  Sex: Female

DRUGS (1)
  1. MIRENA [Suspect]
     Dosage: 20 MCG/24HR, CONT
     Route: 015
     Dates: start: 20130806, end: 20140114

REACTIONS (10)
  - Toxicity to various agents [None]
  - Pruritus generalised [None]
  - Eczema [None]
  - Urticaria [None]
  - Rash generalised [None]
  - Feeling abnormal [None]
  - Nausea [None]
  - Depression [None]
  - Feeling cold [None]
  - Fatigue [None]
